FAERS Safety Report 4947614-8 (Version None)
Quarter: 2006Q1

REPORT INFORMATION
  Report Type: 
  Country: None (occurrence: None)
  Receive Date: 20060320
  Receipt Date: 20060310
  Transmission Date: 20060701
  Serious: Yes (Hospitalization)
  Sender: FDA-Public Use
  Company Number: FI-SOLVAY-00306000814

PATIENT
  Age: 20550 Day
  Sex: Male
  Weight: 67.4 kg

DRUGS (1)
  1. CREON [Suspect]
     Indication: ILL-DEFINED DISORDER
     Dosage: DAILY DOSE: 6 DOSAGE FORM
     Route: 048
     Dates: start: 20050715, end: 20060130

REACTIONS (2)
  - CONVULSION [None]
  - MENINGIOMA [None]
